FAERS Safety Report 7986406-2 (Version None)
Quarter: 2011Q4

REPORT INFORMATION
  Report Type: 
  Country: None (occurrence: None)
  Receive Date: 20111216
  Receipt Date: 20110924
  Transmission Date: 20120403
  Serious: No
  Sender: FDA-Public Use
  Company Number: US-GLAXOSMITHKLINE-A0946231A

PATIENT

DRUGS (3)
  1. ENALAPRIL MALEATE [Concomitant]
     Dosage: 5MG TWICE PER DAY
  2. COREG CR [Suspect]
     Indication: HYPERTENSION
     Dosage: 80MG IN THE MORNING
     Route: 065
  3. NIASPAN [Concomitant]
     Dosage: 500MG TWICE PER DAY

REACTIONS (2)
  - BLOOD PRESSURE FLUCTUATION [None]
  - MIGRAINE [None]
